FAERS Safety Report 23441314 (Version 1)
Quarter: 2024Q1

REPORT INFORMATION
  Report Type: Spontaneous
  Country: US (occurrence: US)
  Receive Date: 20240125
  Receipt Date: 20240125
  Transmission Date: 20240410
  Serious: No
  Sender: FDA-Public Use
  Company Number: US-SUN PHARMACEUTICAL INDUSTRIES LTD-2022R1-369118

PATIENT

DRUGS (2)
  1. GANIRELIX ACETATE [Suspect]
     Active Substance: GANIRELIX ACETATE
     Indication: Product used for unknown indication
     Dosage: UNK
     Route: 065
  2. GANIRELIX ACETATE [Suspect]
     Active Substance: GANIRELIX ACETATE
     Dosage: UNK
     Route: 065

REACTIONS (1)
  - Poor quality product administered [Unknown]
